FAERS Safety Report 12674496 (Version 1)
Quarter: 2016Q3

REPORT INFORMATION
  Report Type: Spontaneous
  Country: US (occurrence: US)
  Receive Date: 20160822
  Receipt Date: 20160822
  Transmission Date: 20161109
  Serious: Yes (Other)
  Sender: FDA-Public Use
  Company Number: US-BEH-2016062198

PATIENT
  Sex: Male
  Weight: 67.59 kg

DRUGS (17)
  1. OXYGEN. [Concomitant]
     Active Substance: OXYGEN
  2. BUDESONIDE. [Concomitant]
     Active Substance: BUDESONIDE
  3. BROVANA [Concomitant]
     Active Substance: ARFORMOTEROL TARTRATE
  4. N-ACETYL-L-CYSTEINE [Concomitant]
     Active Substance: ACETYLCYSTEINE
  5. ALBUTEROL. [Concomitant]
     Active Substance: ALBUTEROL
  6. ATENOLOL. [Concomitant]
     Active Substance: ATENOLOL
  7. LIDOCAINE. [Concomitant]
     Active Substance: LIDOCAINE
  8. SODIUM CHLORIDE. [Concomitant]
     Active Substance: SODIUM CHLORIDE
  9. ZEMAIRA [Suspect]
     Active Substance: .ALPHA.1-PROTEINASE INHIBITOR HUMAN
     Indication: ALPHA-1 ANTI-TRYPSIN DEFICIENCY
     Route: 042
     Dates: start: 20090930
  10. SPIRIVA [Concomitant]
     Active Substance: TIOTROPIUM BROMIDE MONOHYDRATE
  11. PREDNISONE. [Concomitant]
     Active Substance: PREDNISONE
  12. AZITHROMYCIN ANHYDROUS. [Concomitant]
     Active Substance: AZITHROMYCIN ANHYDROUS
  13. EPIPEN [Concomitant]
     Active Substance: EPINEPHRINE
  14. PROAIR HFA [Concomitant]
     Active Substance: ALBUTEROL SULFATE
  15. DIPHENHYDRAMINE. [Concomitant]
     Active Substance: DIPHENHYDRAMINE
  16. TUMS [Concomitant]
     Active Substance: CALCIUM CARBONATE
  17. KLONOPIN [Concomitant]
     Active Substance: CLONAZEPAM

REACTIONS (1)
  - Dyspnoea [Recovering/Resolving]
